FAERS Safety Report 6793224-X (Version None)
Quarter: 2010Q2

REPORT INFORMATION
  Report Type: 
  Country: None (occurrence: None)
  Receive Date: 20100624
  Receipt Date: 20100222
  Transmission Date: 20101027
  Serious: Yes (Other)
  Sender: FDA-Public Use
  Company Number: US-MYLANLABS-2009S1015044

PATIENT
  Age: 53 Year
  Sex: Male
  Weight: 105 kg

DRUGS (9)
  1. CLOZAPINE [Suspect]
     Indication: SCHIZOPHRENIA
     Route: 048
     Dates: start: 20030401, end: 20091214
  2. CLOZAPINE [Suspect]
     Route: 048
     Dates: start: 20030401, end: 20091214
  3. CLOZAPINE [Suspect]
     Route: 048
     Dates: start: 20091215
  4. CLOZAPINE [Suspect]
     Route: 048
     Dates: start: 20091215
  5. HALDOL [Concomitant]
     Route: 048
  6. LITHIUM [Concomitant]
     Route: 048
  7. ZOLOFT [Concomitant]
     Route: 048
  8. FLOMAX /01280302/ [Concomitant]
     Route: 048
  9. NORVASC [Concomitant]

REACTIONS (2)
  - GRANULOCYTOPENIA [None]
  - LEUKOPENIA [None]
